FAERS Safety Report 25593784 (Version 1)
Quarter: 2025Q3

REPORT INFORMATION
  Report Type: Spontaneous
  Country: US (occurrence: US)
  Receive Date: 20250723
  Receipt Date: 20250723
  Transmission Date: 20251021
  Serious: No
  Sender: ROCHE
  Company Number: US-ROCHE-10000337407

PATIENT
  Age: 70 Year
  Sex: Female
  Weight: 72.57 kg

DRUGS (6)
  1. ACTEMRA [Suspect]
     Active Substance: TOCILIZUMAB
     Indication: Rheumatoid arthritis
     Route: 058
     Dates: start: 20250321
  2. ACTEMRA [Suspect]
     Active Substance: TOCILIZUMAB
  3. HYDROCODONE [Concomitant]
     Active Substance: HYDROCODONE
     Indication: Pain
     Dosage: DOSE IS 10MG/325MG. TAKE 1 TAB EVERY 6 HOURS AS NEEDED.
     Route: 048
  4. DICLOFENAC [Concomitant]
     Active Substance: DICLOFENAC
     Indication: Inflammation
     Route: 048
     Dates: start: 2024
  5. PANTOPRAZOLE [Concomitant]
     Active Substance: PANTOPRAZOLE
     Indication: Dyspepsia
     Route: 048
     Dates: start: 2024
  6. QUETIAPINE [Concomitant]
     Active Substance: QUETIAPINE
     Dosage: STARTED 5-6 YEARS AGO
     Route: 048

REACTIONS (3)
  - Product dose omission issue [Unknown]
  - Device defective [Unknown]
  - No adverse event [Unknown]

NARRATIVE: CASE EVENT DATE: 20250711
